FAERS Safety Report 7672067-9 (Version None)
Quarter: 2011Q3

REPORT INFORMATION
  Report Type: 
  Country: None (occurrence: None)
  Receive Date: 20110809
  Receipt Date: 20110726
  Transmission Date: 20111222
  Serious: Yes (Other)
  Sender: FDA-Public Use
  Company Number: PHHY2011BR68407

PATIENT
  Sex: Female

DRUGS (9)
  1. EXELON [Suspect]
     Indication: MULTIPLE SCLEROSIS
     Dosage: 1 DF DAILY
     Route: 048
     Dates: start: 20100601
  2. AMIODARONE HCL [Concomitant]
     Dosage: 1 DFPER DAY
     Route: 048
     Dates: start: 20110601
  3. SOMALGIN [Concomitant]
     Indication: CARDIOVASCULAR DISORDER
     Dosage: 1 DFPER DAY
     Route: 048
     Dates: start: 20100601
  4. EXELON [Suspect]
     Indication: MULTIPLE SCLEROSIS
     Dosage: 9 MG/5 CM2
     Route: 062
     Dates: end: 20110601
  5. DIOSMIN W/HESPERIDIN [Concomitant]
     Indication: VARICOSE VEIN
     Dosage: 2 DF PER DAY
     Route: 048
  6. EXFORGE [Suspect]
     Indication: HYPERTENSION
     Dosage: 1 DF IN THE MORNING
     Route: 048
     Dates: end: 20110401
  7. RASILEZ HCT [Suspect]
     Indication: HYPERTENSION
     Dosage: 1 DF AT NIGHT
     Route: 048
  8. SAXAGLIPTIN [Concomitant]
     Indication: DIABETES MELLITUS
     Dosage: 2 TABLETS PER DAY
     Route: 048
     Dates: start: 20110601
  9. VASTAREL [Concomitant]
     Indication: ANGINA PECTORIS
     Dosage: 2 DFPER DAY
     Route: 048

REACTIONS (6)
  - GAIT DISTURBANCE [None]
  - SPEECH DISORDER [None]
  - OEDEMA PERIPHERAL [None]
  - DYSSTASIA [None]
  - MULTIPLE SCLEROSIS [None]
  - MOTOR DYSFUNCTION [None]
